FAERS Safety Report 10880892 (Version 1)
Quarter: 2015Q1

REPORT INFORMATION
  Report Type: Spontaneous
  Country: US (occurrence: None)
  Receive Date: 20150225
  Receipt Date: 20150225
  Transmission Date: 20150721
  Serious: No
  Sender: FDA-Public Use
  Company Number: None

PATIENT
  Age: 38 Year
  Sex: Female

DRUGS (1)
  1. ENBREL [Suspect]
     Active Substance: ETANERCEPT
     Indication: RHEUMATOID ARTHRITIS
     Route: 058
     Dates: start: 20141028

REACTIONS (8)
  - Nodule [None]
  - Pain [None]
  - Menorrhagia [None]
  - Alopecia [None]
  - Pruritus [None]
  - Arthralgia [None]
  - Contusion [None]
  - Raynaud^s phenomenon [None]

NARRATIVE: CASE EVENT DATE: 20141028
